FAERS Safety Report 5154375-9 (Version None)
Quarter: 2006Q4

REPORT INFORMATION
  Report Type: 
  Country: None (occurrence: None)
  Receive Date: 20061114
  Receipt Date: 20061030
  Transmission Date: 20070319
  Serious: Yes (Disabling, Other)
  Sender: FDA-Public Use
  Company Number: 2004033115

PATIENT
  Age: 37 Year
  Sex: Female

DRUGS (4)
  1. VFEND (VOROCONAZOLE) [Suspect]
     Indication: ASPERGILLOSIS
     Dosage: 400 MG (200 MG, BID), ORAL
     Route: 048
     Dates: start: 20040201
  2. CYCLOSPORINE [Suspect]
     Indication: HEART AND LUNG TRANSPLANT
     Dosage: 80 MG (DAILY), ORAL
     Route: 048
     Dates: start: 19890101
  3. METHOTREXATE [Suspect]
     Indication: HEART AND LUNG TRANSPLANT
     Dates: start: 19890101
  4. PREDNISONE TAB [Suspect]
     Indication: HEART AND LUNG TRANSPLANT
     Dates: start: 19890101

REACTIONS (5)
  - CHOLECYSTITIS [None]
  - CHOLELITHIASIS [None]
  - CYTOLYTIC HEPATITIS [None]
  - DRUG INTERACTION [None]
  - JAUNDICE [None]
